FAERS Safety Report 19360929 (Version 1)
Quarter: 2021Q2

REPORT INFORMATION
  Report Type: Report from Study
  Country: None (occurrence: US)
  Receive Date: 20210602
  Receipt Date: 20210602
  Transmission Date: 20210717
  Serious: No
  Sender: FDA-Public Use
  Company Number: US-MDD US OPERATIONS-MDD202101-000042

PATIENT
  Age: 66 Year
  Sex: Female

DRUGS (2)
  1. APOKYN [Suspect]
     Active Substance: APOMORPHINE HYDROCHLORIDE
     Indication: SYNCOPE
  2. APOKYN [Suspect]
     Active Substance: APOMORPHINE HYDROCHLORIDE
     Indication: PARKINSON^S DISEASE
     Dosage: UP TO 0.4ML
     Route: 058
     Dates: start: 20201204

REACTIONS (3)
  - Nausea [Unknown]
  - Product use in unapproved indication [Unknown]
  - Vomiting [Unknown]

NARRATIVE: CASE EVENT DATE: 202012
